FAERS Safety Report 6692730-6 (Version None)
Quarter: 2010Q2

REPORT INFORMATION
  Report Type: 
  Country: None (occurrence: None)
  Receive Date: 20100422
  Receipt Date: 20100413
  Transmission Date: 20101027
  Serious: Yes (Hospitalization)
  Sender: FDA-Public Use
  Company Number: PHHY2010IN23787

PATIENT
  Age: 30 Year
  Sex: Male

DRUGS (1)
  1. CYCLOSPORINE [Suspect]
     Indication: RENAL TRANSPLANT

REACTIONS (12)
  - BLADDER CATHETERISATION [None]
  - BLOOD CREATININE INCREASED [None]
  - GENERAL ANAESTHESIA [None]
  - HAEMATOMA EVACUATION [None]
  - HAEMATURIA [None]
  - HAEMODIALYSIS [None]
  - HYPERTENSION [None]
  - NEPHROPATHY TOXIC [None]
  - RENAL ATROPHY [None]
  - RENAL HAEMATOMA [None]
  - RENAL IMPAIRMENT [None]
  - URINE OUTPUT DECREASED [None]
